FAERS Safety Report 10873852 (Version 2)
Quarter: 2015Q1

REPORT INFORMATION
  Report Type: Spontaneous
  Country: US (occurrence: US)
  Receive Date: 20150227
  Receipt Date: 20150227
  Transmission Date: 20150721
  Serious: Yes (Hospitalization, Other)
  Sender: FDA-Public Use
  Company Number: US-JNJFOC-20150205521

PATIENT
  Age: 64 Year
  Sex: Male

DRUGS (15)
  1. PAROXETINE [Concomitant]
     Active Substance: PAROXETINE\PAROXETINE HYDROCHLORIDE
     Route: 048
  2. ACYCLOVIR. [Concomitant]
     Active Substance: ACYCLOVIR
     Indication: HERPES SIMPLEX
     Dosage: 200 MG, BID PRN
     Route: 048
  3. BUDESONIDE W/FORMOTEROL FUMARATE [Concomitant]
     Active Substance: BUDESONIDE\FORMOTEROL FUMARATE
     Dosage: 160/4.5 MCG/PUFF, 2 PUFFS BID
     Route: 055
  4. POTASSIUM CITRATE. [Concomitant]
     Active Substance: POTASSIUM CITRATE
     Dosage: 10 MEQ, TID
     Route: 048
  5. NASONEX [Concomitant]
     Active Substance: MOMETASONE FUROATE
     Indication: CHRONIC SINUSITIS
     Dosage: 50 MCG/ACT, 2 SPRAYS QD
     Route: 045
  6. ACETAMINOPHEN. [Concomitant]
     Active Substance: ACETAMINOPHEN
     Dosage: UNK, 2 TABS PRN
     Route: 048
  7. FERROUS GLUCONATE [Concomitant]
     Active Substance: FERROUS GLUCONATE
     Dosage: 324/38 MG,QD
     Route: 048
  8. CLARITIN [Concomitant]
     Active Substance: LORATADINE
     Indication: CHRONIC SINUSITIS
  9. ALLOPURINOL. [Concomitant]
     Active Substance: ALLOPURINOL
     Dosage: 100 MG, TAKE 200 MG QD
     Route: 048
  10. CHOLECALCIFEROL [Concomitant]
     Active Substance: CHOLECALCIFEROL
     Dosage: 1000 UNITS, QD
  11. WELLBUTRIN [Concomitant]
     Active Substance: BUPROPION HYDROCHLORIDE
     Route: 048
  12. IMBRUVICA [Suspect]
     Active Substance: IBRUTINIB
     Indication: CHRONIC LYMPHOCYTIC LEUKAEMIA
     Route: 048
     Dates: start: 20140127, end: 20141210
  13. FORTEO [Concomitant]
     Active Substance: TERIPARATIDE
     Dosage: 600 MCG/2.4 ML, INJECT 20MCG DAILY
     Route: 058
  14. CETRIZINE [Concomitant]
     Active Substance: CETIRIZINE HYDROCHLORIDE
     Route: 048
  15. LEVAQUIN [Concomitant]
     Active Substance: LEVOFLOXACIN
     Indication: BRONCHIECTASIS

REACTIONS (14)
  - Head injury [Unknown]
  - Fall [Unknown]
  - Staphylococcal infection [Unknown]
  - Contusion [Unknown]
  - Staring [Unknown]
  - Loss of consciousness [Recovered/Resolved]
  - Weight increased [Unknown]
  - Cardiomyopathy [Not Recovered/Not Resolved]
  - Atrial fibrillation [Recovered/Resolved]
  - Hallucination [Unknown]
  - Dyspnoea [Unknown]
  - Pleural effusion [Recovered/Resolved]
  - Cardiac flutter [Not Recovered/Not Resolved]
  - Chronic sinusitis [Unknown]

NARRATIVE: CASE EVENT DATE: 201411
